FAERS Safety Report 13127072 (Version 2)
Quarter: 2017Q1

REPORT INFORMATION
  Report Type: Spontaneous
  Country: JP (occurrence: JP)
  Receive Date: 20170118
  Receipt Date: 20170209
  Transmission Date: 20170428
  Serious: Yes (Death, Hospitalization)
  Sender: FDA-Public Use
  Company Number: JP-ELI_LILLY_AND_COMPANY-JP201701004920

PATIENT
  Age: 73 Year
  Sex: Male
  Weight: 63.8 kg

DRUGS (5)
  1. LOXOPROFEN [Concomitant]
     Active Substance: LOXOPROFEN
     Indication: BACK PAIN
     Route: 048
  2. DOCETAXEL. [Suspect]
     Active Substance: DOCETAXEL
     Indication: LUNG SQUAMOUS CELL CARCINOMA RECURRENT
     Dosage: 100 MG, OTHER
     Route: 042
     Dates: start: 20161110, end: 20161222
  3. LANSOPRAZOLE. [Concomitant]
     Active Substance: LANSOPRAZOLE
     Indication: GASTRIC ULCER
     Dosage: UNK
     Route: 048
  4. URIEF [Concomitant]
     Active Substance: SILODOSIN
     Indication: BENIGN PROSTATIC HYPERPLASIA
     Dosage: UNK
  5. CYRAMZA [Suspect]
     Active Substance: RAMUCIRUMAB
     Indication: LUNG SQUAMOUS CELL CARCINOMA RECURRENT
     Dosage: 640 MG, OTHER
     Route: 042
     Dates: start: 20161110, end: 20161222

REACTIONS (1)
  - Interstitial lung disease [Fatal]

NARRATIVE: CASE EVENT DATE: 20170107
